FAERS Safety Report 5161903-6 (Version None)
Quarter: 2006Q4

REPORT INFORMATION
  Report Type: 
  Country: None (occurrence: None)
  Receive Date: 20061130
  Receipt Date: 20061020
  Transmission Date: 20070319
  Serious: No
  Sender: FDA-Public Use
  Company Number: US-GLAXOSMITHKLINE-A0624386A

PATIENT
  Age: 24 Year
  Sex: Male

DRUGS (3)
  1. WELLBUTRIN XL [Suspect]
     Indication: DEPRESSION
     Dosage: 300MG PER DAY
     Route: 048
     Dates: start: 20060401
  2. LAMICTAL [Concomitant]
  3. SEROQUEL [Concomitant]

REACTIONS (2)
  - ABDOMINAL PAIN [None]
  - POLLAKIURIA [None]
